FAERS Safety Report 9940814 (Version 1)
Quarter: 2014Q1

REPORT INFORMATION
  Report Type: Spontaneous
  Country: US (occurrence: US)
  Receive Date: 20140303
  Receipt Date: 20140303
  Transmission Date: 20141002
  Serious: No
  Sender: FDA-Public Use
  Company Number: US-MYLANLABS-2013S1025782

PATIENT
  Sex: Female

DRUGS (1)
  1. MONTELUKAST SODIUM TABLETS [Suspect]
     Route: 048
     Dates: start: 201311

REACTIONS (2)
  - Burning sensation mucosal [Not Recovered/Not Resolved]
  - Abdominal discomfort [Not Recovered/Not Resolved]
